FAERS Safety Report 5859388-7 (Version None)
Quarter: 2008Q3

REPORT INFORMATION
  Report Type: 
  Country: None (occurrence: None)
  Receive Date: 20080826
  Receipt Date: 20080826
  Transmission Date: 20090109
  Serious: No
  Sender: FDA-Public Use
  Company Number: None

PATIENT
  Age: 9 Year
  Sex: Male
  Weight: 34.0198 kg

DRUGS (1)
  1. CHLORAL HYDRATE 100 MG/5 ML QUALITEST [Suspect]
     Indication: INSOMNIA
     Dosage: 950 MG DAILY
     Dates: start: 20080401, end: 20080801

REACTIONS (11)
  - COLD SWEAT [None]
  - CRYING [None]
  - DRUG TOLERANCE INCREASED [None]
  - DRUG WITHDRAWAL SYNDROME [None]
  - INITIAL INSOMNIA [None]
  - NEUROLOGICAL SYMPTOM [None]
  - PHARMACEUTICAL PRODUCT COMPLAINT [None]
  - POOR QUALITY SLEEP [None]
  - SCREAMING [None]
  - SOMNOLENCE [None]
  - TREMOR [None]
